FAERS Safety Report 6105555-7 (Version None)
Quarter: 2009Q1

REPORT INFORMATION
  Report Type: 
  Country: None (occurrence: None)
  Receive Date: 20090306
  Receipt Date: 20090220
  Transmission Date: 20090719
  Serious: Yes (Hospitalization)
  Sender: FDA-Public Use
  Company Number: FR-GENENTECH-276198

PATIENT
  Age: 58 Year
  Sex: Male

DRUGS (3)
  1. AVASTIN [Suspect]
     Indication: COLON CANCER
     Dosage: 700 MG, UNK
     Route: 042
     Dates: start: 20061101
  2. XELODA [Suspect]
     Indication: COLON CANCER
     Dosage: 1.5 G, QD
     Route: 048
     Dates: start: 20061101
  3. IRINOTECAN HCL [Suspect]
     Indication: COLON CANCER
     Dosage: 430 MG, UNK
     Route: 042
     Dates: start: 20071001

REACTIONS (2)
  - APLASIA [None]
  - PYREXIA [None]
